FAERS Safety Report 9455459 (Version 1)
Quarter: 2013Q3

REPORT INFORMATION
  Report Type: Report from Study
  Country: CA (occurrence: CA)
  Receive Date: 20130813
  Receipt Date: 20130813
  Transmission Date: 20140515
  Serious: Yes (Hospitalization)
  Sender: FDA-Public Use
  Company Number: CA-JNJFOC-20130804292

PATIENT
  Sex: Male
  Weight: 41 kg

DRUGS (7)
  1. REMICADE [Suspect]
     Indication: CROHN^S DISEASE
     Route: 042
     Dates: start: 20120528
  2. BENADRYL [Concomitant]
     Indication: PREMEDICATION
     Route: 042
  3. HYDROCORTISONE [Concomitant]
     Indication: PREMEDICATION
     Route: 042
  4. METHOTREXATE [Concomitant]
     Dosage: EVERY FRIDAY
     Route: 048
  5. MULTIVITAMINS [Concomitant]
     Route: 048
  6. VITAMIN D [Concomitant]
     Route: 048
  7. FOLIC ACID [Concomitant]
     Dosage: EVERY SATURDAY
     Route: 048

REACTIONS (1)
  - Intestinal stenosis [Unknown]
